FAERS Safety Report 10388997 (Version 1)
Quarter: 2014Q3

REPORT INFORMATION
  Report Type: Spontaneous
  Country: US (occurrence: None)
  Receive Date: 20140812
  Receipt Date: 20140812
  Transmission Date: 20150326
  Serious: Yes (Other)
  Sender: FDA-Public Use
  Company Number: SYM-2014-24146

PATIENT
  Age: 34 Year
  Sex: Female

DRUGS (3)
  1. DEPAKOTE [Concomitant]
     Active Substance: DIVALPROEX SODIUM
  2. ZYPREXA (OLANZAPINE) (OLANZAPINE) [Concomitant]
  3. XENAZINE [Suspect]
     Active Substance: TETRABENAZINE
     Indication: HUNTINGTON^S DISEASE
     Route: 048
     Dates: start: 20140210

REACTIONS (1)
  - Hallucination, auditory [None]

NARRATIVE: CASE EVENT DATE: 20140805
